FAERS Safety Report 7673538-1 (Version None)
Quarter: 2011Q3

REPORT INFORMATION
  Report Type: 
  Country: None (occurrence: None)
  Receive Date: 20110810
  Receipt Date: 20110726
  Transmission Date: 20111222
  Serious: No
  Sender: FDA-Public Use
  Company Number: US-B.I. PHARMACEUTICALS,INC./RIDGEFIELD-2011-BP-05511BP

PATIENT
  Sex: Female
  Weight: 80.7 kg

DRUGS (20)
  1. PRADAXA [Suspect]
     Indication: ATRIAL FIBRILLATION
     Dosage: 300 MG
     Route: 048
     Dates: start: 20101201, end: 20110325
  2. TYLENOL PM [Concomitant]
     Indication: INSOMNIA
     Route: 048
  3. LIPITOR [Concomitant]
     Indication: BLOOD CHOLESTEROL INCREASED
     Dosage: 40 MG
     Route: 048
  4. METOPROLOL TARTRATE [Concomitant]
     Dosage: 100 MG
     Route: 048
  5. SINGULAIR [Concomitant]
     Indication: ASTHMA
  6. ASCORBIC ACID [Concomitant]
     Indication: PROPHYLAXIS
     Dosage: 500 MG
     Route: 048
  7. VESICARE [Concomitant]
     Dosage: 5 MG
     Route: 048
  8. GLYBURIDE [Concomitant]
     Indication: DIABETES MELLITUS
     Dosage: 10 MG
     Route: 048
  9. LOPRESSOR [Concomitant]
     Indication: HYPERTENSION
  10. CENTRUM [Concomitant]
     Indication: SUPPLEMENTATION THERAPY
  11. KEFLEX [Concomitant]
     Indication: URINARY TRACT INFECTION
  12. BENADRYL [Concomitant]
     Indication: SLEEP DISORDER
     Dosage: 50 MG
     Route: 048
  13. CITRACAL PLUS VIT D [Concomitant]
     Indication: SUPPLEMENTATION THERAPY
     Route: 048
  14. LANTUS [Concomitant]
     Indication: DIABETES MELLITUS
     Dosage: 30 U
     Route: 058
  15. RANTIDINE [Concomitant]
     Indication: GASTROOESOPHAGEAL REFLUX DISEASE
     Dosage: 30 MG
     Route: 048
  16. VALACYCLOVIR [Concomitant]
     Indication: HERPES VIRUS INFECTION
     Dosage: 1 G
     Route: 048
  17. FISH OIL [Concomitant]
     Indication: SUPPLEMENTATION THERAPY
  18. PRADAXA [Suspect]
     Indication: DEEP VEIN THROMBOSIS
  19. PRIMIDONE [Concomitant]
     Indication: TREMOR
     Dosage: 100 MG
     Route: 048
  20. VITAMIN B-12 [Concomitant]
     Indication: PROPHYLAXIS
     Dosage: 1000 U
     Route: 048

REACTIONS (4)
  - BLOOD URINE PRESENT [None]
  - HAEMATURIA [None]
  - RECTAL HAEMORRHAGE [None]
  - URINARY TRACT INFECTION [None]
